FAERS Safety Report 21200916 (Version 1)
Quarter: 2022Q3

REPORT INFORMATION
  Report Type: Spontaneous
  Country: US (occurrence: None)
  Receive Date: 20220811
  Receipt Date: 20220811
  Transmission Date: 20221027
  Serious: No
  Sender: FDA-Public Use
  Company Number: 2022A256897

PATIENT
  Sex: Female
  Weight: 95.3 kg

DRUGS (1)
  1. BYETTA [Suspect]
     Active Substance: EXENATIDE
     Dosage: 250 UG / 2.4 ML2.4ML UNKNOWN
     Route: 058

REACTIONS (2)
  - Injury associated with device [Unknown]
  - Device mechanical issue [Unknown]
